FAERS Safety Report 7529556-7 (Version None)
Quarter: 2011Q2

REPORT INFORMATION
  Report Type: 
  Country: None (occurrence: None)
  Receive Date: 20110520
  Receipt Date: 20110418
  Transmission Date: 20111010
  Serious: No
  Sender: FDA-Public Use
  Company Number: 025955

PATIENT
  Sex: Female
  Weight: 68.0396 kg

DRUGS (6)
  1. DILANTIN [Concomitant]
     Dates: start: 20110101
  2. LACOSAMIDE [Suspect]
     Indication: GRAND MAL CONVULSION
     Dosage: (100 MG BID, 100MG IN MORNING AND 100 MG AT NIGHT ORAL0
     Route: 048
     Dates: start: 20101101
  3. KEPPRA [Suspect]
     Indication: GRAND MAL CONVULSION
     Dosage: SEE IMAGE
     Route: 048
     Dates: start: 20090101, end: 20101101
  4. KEPPRA [Suspect]
     Indication: GRAND MAL CONVULSION
     Dosage: SEE IMAGE
     Route: 048
     Dates: start: 20101101
  5. KLONOPIN [Concomitant]
     Dates: start: 20101101
  6. REMERON [Concomitant]

REACTIONS (4)
  - CONVULSION [None]
  - FALL [None]
  - GAIT DISTURBANCE [None]
  - DIPLOPIA [None]
